FAERS Safety Report 11049117 (Version 1)
Quarter: 2015Q2

REPORT INFORMATION
  Report Type: Spontaneous
  Country: CA (occurrence: CA)
  Receive Date: 20150420
  Receipt Date: 20150420
  Transmission Date: 20150821
  Serious: Yes (Death, Life-Threatening)
  Sender: FDA-Public Use
  Company Number: CA-ASTRAZENECA-2015SE35884

PATIENT
  Sex: Male
  Weight: 66 kg

DRUGS (1)
  1. SEROQUEL [Suspect]
     Active Substance: QUETIAPINE FUMARATE
     Route: 048

REACTIONS (8)
  - Lip swelling [Fatal]
  - Tremor [Fatal]
  - Tongue disorder [Fatal]
  - Somnolence [Fatal]
  - Agitation [Fatal]
  - Asthenia [Fatal]
  - Lip ulceration [Fatal]
  - VIIth nerve paralysis [Fatal]
